FAERS Safety Report 13251845 (Version 6)
Quarter: 2019Q1

REPORT INFORMATION
  Report Type: Spontaneous
  Country: US (occurrence: US)
  Receive Date: 20170220
  Receipt Date: 20190314
  Transmission Date: 20190417
  Serious: No
  Sender: FDA-Public Use
  Company Number: US-PFIZER INC-2017072998

PATIENT
  Sex: Female

DRUGS (2)
  1. XELJANZ XR [Suspect]
     Active Substance: TOFACITINIB CITRATE
     Indication: RHEUMATOID ARTHRITIS
     Dosage: 11 MG, 1X/DAY
     Route: 048
     Dates: start: 201512
  2. XELJANZ XR [Suspect]
     Active Substance: TOFACITINIB CITRATE
     Dosage: UNK
     Dates: start: 20190205

REACTIONS (10)
  - Arthralgia [Unknown]
  - Epistaxis [Unknown]
  - Nasopharyngitis [Recovered/Resolved]
  - Hypertension [Recovering/Resolving]
  - Joint swelling [Unknown]
  - Abdominal pain upper [Unknown]
  - Headache [Unknown]
  - Sinus disorder [Recovered/Resolved]
  - Finger deformity [Not Recovered/Not Resolved]
  - Musculoskeletal pain [Unknown]

NARRATIVE: CASE EVENT DATE: 2017
